FAERS Safety Report 22084553 (Version 1)
Quarter: 2023Q1

REPORT INFORMATION
  Report Type: Spontaneous
  Country: US (occurrence: None)
  Receive Date: 20230309
  Receipt Date: 20230309
  Transmission Date: 20230417
  Serious: Yes (Hospitalization)
  Sender: FDA-Public Use
  Company Number: None

PATIENT
  Age: 71 Year
  Sex: Female

DRUGS (1)
  1. ENBREL [Suspect]
     Active Substance: ETANERCEPT
     Indication: Rheumatoid arthritis
     Dosage: 50MG OTHR SUBCUTANEOUS
     Route: 058
     Dates: start: 202105

REACTIONS (5)
  - Localised infection [None]
  - Peripheral swelling [None]
  - Peripheral swelling [None]
  - Peripheral swelling [None]
  - Back pain [None]

NARRATIVE: CASE EVENT DATE: 20230227
